FAERS Safety Report 8866512 (Version 1)
Quarter: 2012Q4

REPORT INFORMATION
  Report Type: 
  Country: US (occurrence: US)
  Receive Date: 20121025
  Receipt Date: 20121025
  Transmission Date: 20130627
  Serious: Yes (Death)
  Sender: FDA-Public Use
  Company Number: US-CELGENEUS-163-21880-12102905

PATIENT
  Sex: Female

DRUGS (3)
  1. REVLIMID [Suspect]
     Indication: MYELODYSPLASTIC SYNDROME
     Dosage: 10 Milligram
     Route: 048
     Dates: start: 201105
  2. REVLIMID [Suspect]
     Dosage: 5 Milligram
     Route: 048
     Dates: start: 201109
  3. REVLIMID [Suspect]
     Dosage: 10 Milligram
     Route: 048
     Dates: start: 201204

REACTIONS (1)
  - Myelodysplastic syndrome [Fatal]
